FAERS Safety Report 16350788 (Version 1)
Quarter: 2019Q2

REPORT INFORMATION
  Report Type: Spontaneous
  Country: US (occurrence: US)
  Receive Date: 20190524
  Receipt Date: 20190524
  Transmission Date: 20190711
  Serious: Yes (Hospitalization, Other)
  Sender: FDA-Public Use
  Company Number: US-009507513-1905USA007624

PATIENT
  Age: 63 Year
  Sex: Female

DRUGS (3)
  1. TEMODAR [Suspect]
     Active Substance: TEMOZOLOMIDE
     Indication: GLIOBLASTOMA
     Dosage: 80 MG ONCE DAILY
     Route: 048
     Dates: start: 20190327
  2. IRINOTECAN HYDROCHLORIDE. [Suspect]
     Active Substance: IRINOTECAN HYDROCHLORIDE
     Indication: GLIOBLASTOMA
     Dosage: 116.1 MG, (CYCLE 1)
     Dates: start: 20190327
  3. IRINOTECAN HYDROCHLORIDE. [Suspect]
     Active Substance: IRINOTECAN HYDROCHLORIDE
     Dosage: 116.1 MG, (CYCLE 2)
     Dates: start: 20190409

REACTIONS (2)
  - Hemiparesis [Unknown]
  - Fall [Unknown]

NARRATIVE: CASE EVENT DATE: 20190420
